FAERS Safety Report 23229114 (Version 1)
Quarter: 2023Q4

REPORT INFORMATION
  Report Type: Spontaneous
  Country: US (occurrence: US)
  Receive Date: 20231127
  Receipt Date: 20231127
  Transmission Date: 20240110
  Serious: Yes (Life-Threatening, Hospitalization, Other)
  Sender: FDA-Public Use
  Company Number: US-BRISTOL-MYERS SQUIBB COMPANY-2023-168778

PATIENT
  Age: 69 Year
  Sex: Female

DRUGS (2)
  1. NIVOLUMAB [Suspect]
     Active Substance: NIVOLUMAB
     Indication: Choroid melanoma
     Dates: start: 20220526
  2. IPILIMUMAB [Suspect]
     Active Substance: IPILIMUMAB
     Indication: Choroid melanoma
     Dates: start: 20220526, end: 20220730

REACTIONS (2)
  - Immune-mediated hypophysitis [Recovered/Resolved]
  - Immune-mediated thyroiditis [Unknown]

NARRATIVE: CASE EVENT DATE: 20220101
